FAERS Safety Report 24094468 (Version 1)
Quarter: 2024Q3

REPORT INFORMATION
  Report Type: Spontaneous
  Country: IT (occurrence: IT)
  Receive Date: 20240716
  Receipt Date: 20240716
  Transmission Date: 20241016
  Serious: Yes (Hospitalization, Other)
  Sender: TEVA
  Company Number: None

PATIENT
  Age: 59 Year
  Sex: Male

DRUGS (4)
  1. ZOLPIDEM [Suspect]
     Active Substance: ZOLPIDEM TARTRATE
     Indication: Product used for unknown indication
     Dosage: TAKEN FOR SELF-HARMING PURPOSES: 40 TABLETS OF 10 MG
     Route: 048
     Dates: start: 20240620, end: 20240620
  2. VALIUM [Suspect]
     Active Substance: DIAZEPAM
     Indication: Product used for unknown indication
     Dosage: TAKEN FOR SELF-HARMING PURPOSES: 10 BOTTLES OF 5MG/ML DROPS
     Route: 048
     Dates: start: 20240620, end: 20240620
  3. FLURAZEPAM HYDROCHLORIDE [Suspect]
     Active Substance: FLURAZEPAM HYDROCHLORIDE
     Indication: Product used for unknown indication
     Dosage: TAKEN FOR SELF-HARMING PURPOSES: 15 TABLETS OF 30 MG
     Route: 048
     Dates: start: 20240620, end: 20240620
  4. AMLODIPINE [Suspect]
     Active Substance: AMLODIPINE BESYLATE
     Indication: Product used for unknown indication
     Dosage: TAKEN FOR SELF-HARMING PURPOSES: 10 TABLETS OF 10 MG
     Route: 048
     Dates: start: 20240620, end: 20240620

REACTIONS (4)
  - Intentional self-injury [Recovered/Resolved]
  - Cognitive disorder [Recovered/Resolved]
  - Drug abuse [Recovered/Resolved]
  - Bradypnoea [Recovered/Resolved]

NARRATIVE: CASE EVENT DATE: 20240620
